FAERS Safety Report 6191192-5 (Version None)
Quarter: 2009Q2

REPORT INFORMATION
  Report Type: 
  Country: None (occurrence: None)
  Receive Date: 20090515
  Receipt Date: 20070316
  Transmission Date: 20091009
  Serious: Yes (Hospitalization)
  Sender: FDA-Public Use
  Company Number: US-ASTRAZENECA-2006UW24794

PATIENT
  Sex: Male
  Weight: 82.4 kg

DRUGS (14)
  1. SEROQUEL [Suspect]
     Dosage: 100-500 MG
     Route: 048
     Dates: start: 20050206
  2. DEPAKOTE [Concomitant]
     Dosage: STRENGTH 500MG-1500MG
     Route: 048
  3. ATIVAN [Concomitant]
     Route: 048
  4. PREVACID [Concomitant]
     Route: 048
  5. TOPROL-XL [Concomitant]
     Route: 048
  6. AVANDIA [Concomitant]
     Route: 048
  7. ZOCOR [Concomitant]
     Dosage: STRENGTH 10MG- 20MG
     Route: 048
  8. COUMADIN [Concomitant]
     Dosage: STRENGTH 0.5MG-7.5MG
     Route: 048
  9. COLACE [Concomitant]
     Route: 048
  10. VALPROIC ACID [Concomitant]
     Dosage: STRENGTH 250MG-750MG
     Route: 048
  11. PROLIXIN DECANOATE [Concomitant]
     Route: 048
  12. GEODON [Concomitant]
     Dosage: STRENGTH 40MG-100MG
     Route: 048
  13. LISINOPRIL [Concomitant]
     Dosage: STREMGTH 10MG-20MG
     Route: 048
  14. IRON PREPARATIONS [Concomitant]
     Route: 048

REACTIONS (2)
  - BIPOLAR DISORDER [None]
  - SCHIZOAFFECTIVE DISORDER [None]
